FAERS Safety Report 12992729 (Version 2)
Quarter: 2016Q4

REPORT INFORMATION
  Report Type: Spontaneous
  Country: IT (occurrence: IT)
  Receive Date: 20161202
  Receipt Date: 20161212
  Transmission Date: 20170207
  Serious: Yes (Hospitalization)
  Sender: FDA-Public Use
  Company Number: IT-ROCHE-1862640

PATIENT
  Age: 93 Year
  Sex: Male

DRUGS (10)
  1. PLAVIX [Concomitant]
     Active Substance: CLOPIDOGREL BISULFATE
  2. PARIET [Interacting]
     Active Substance: RABEPRAZOLE SODIUM
     Indication: PRODUCT USED FOR UNKNOWN INDICATION
     Route: 065
  3. REOMAX (ITALY) [Concomitant]
  4. AVODART [Concomitant]
     Active Substance: DUTASTERIDE
  5. SIMVASTATIN. [Interacting]
     Active Substance: SIMVASTATIN
     Indication: HYPERCHOLESTEROLAEMIA
     Dosage: PERIOD OF ADMINISTRATION: 1 YEAR
     Route: 048
  6. KEPPRA [Suspect]
     Active Substance: LEVETIRACETAM
     Indication: EPILEPSY
     Dosage: PERIOD OF ADMINISTRATION: 1 YEAR
     Route: 048
  7. ROCEFIN [Suspect]
     Active Substance: CEFTRIAXONE SODIUM
     Indication: INFECTION
     Route: 042
     Dates: start: 20161126, end: 20161128
  8. TAMSULOSIN HYDROCHLORIDE. [Concomitant]
     Active Substance: TAMSULOSIN HYDROCHLORIDE
  9. LANOXIN [Concomitant]
     Active Substance: DIGOXIN
  10. CLEXANE [Concomitant]
     Active Substance: ENOXAPARIN SODIUM

REACTIONS (2)
  - Hepatitis acute [Recovering/Resolving]
  - Drug interaction [Unknown]

NARRATIVE: CASE EVENT DATE: 20161128
